FAERS Safety Report 5002515-4 (Version None)
Quarter: 2006Q2

REPORT INFORMATION
  Report Type: 
  Country: None (occurrence: None)
  Receive Date: 20060515
  Receipt Date: 20051003
  Transmission Date: 20061013
  Serious: Yes (Hospitalization, Other)
  Sender: FDA-Public Use
  Company Number: US-MERCK-0510USA02896

PATIENT
  Age: 60 Year
  Sex: Male
  Weight: 84 kg

DRUGS (1)
  1. VIOXX [Suspect]
     Indication: ARTHRITIS
     Route: 048
     Dates: start: 20000909, end: 20040827

REACTIONS (12)
  - AORTIC VALVE INCOMPETENCE [None]
  - CEREBROVASCULAR ACCIDENT [None]
  - DEAFNESS [None]
  - HYPERLIPIDAEMIA [None]
  - HYPERTENSION [None]
  - MENISCUS LESION [None]
  - MITRAL VALVE CALCIFICATION [None]
  - MITRAL VALVE INCOMPETENCE [None]
  - NEUROPATHY PERIPHERAL [None]
  - OEDEMA PERIPHERAL [None]
  - SPINAL OSTEOARTHRITIS [None]
  - TRICUSPID VALVE INCOMPETENCE [None]
